FAERS Safety Report 5233715-6 (Version None)
Quarter: 2007Q1

REPORT INFORMATION
  Report Type: 
  Country: None (occurrence: None)
  Receive Date: 20070208
  Receipt Date: 20070207
  Transmission Date: 20070707
  Serious: Yes (Death, Hospitalization)
  Sender: FDA-Public Use
  Company Number: FR-GLAXOSMITHKLINE-B0455196A

PATIENT
  Age: 81 Year
  Sex: Male

DRUGS (4)
  1. ARIXTRA [Suspect]
     Indication: DEEP VEIN THROMBOSIS
     Dosage: 7.5MG PER DAY
     Route: 058
     Dates: start: 20061227
  2. PREVISCAN [Suspect]
     Route: 048
     Dates: end: 20061227
  3. ASPIRIN [Concomitant]
     Dates: end: 20061227
  4. LOGIRENE [Concomitant]

REACTIONS (7)
  - ABDOMINAL HAEMATOMA [None]
  - ABDOMINAL PAIN [None]
  - ANAEMIA [None]
  - INJECTION SITE INDURATION [None]
  - RETROPERITONEAL HAEMORRHAGE [None]
  - SUDDEN DEATH [None]
  - URINARY TRACT DISORDER [None]
